FAERS Safety Report 6979353-6 (Version None)
Quarter: 2010Q3

REPORT INFORMATION
  Report Type: 
  Country: None (occurrence: None)
  Receive Date: 20100910
  Receipt Date: 20100910
  Transmission Date: 20110219
  Serious: Yes (Other)
  Sender: FDA-Public Use
  Company Number: None

PATIENT
  Sex: Male

DRUGS (4)
  1. FLEBOGAMMA 5% [Suspect]
     Indication: IMMUNODEFICIENCY COMMON VARIABLE
     Dosage: 25 GRAMS Q2 WEEKS IV
     Route: 042
     Dates: start: 20100827, end: 20100827
  2. FLEBOGAMMA 5% [Suspect]
     Dosage: N/A
  3. A-METHOPRED [Concomitant]
  4. NABUMETONE [Concomitant]

REACTIONS (4)
  - FATIGUE [None]
  - HEADACHE [None]
  - INFUSION RELATED REACTION [None]
  - MIGRAINE [None]
